FAERS Safety Report 6062232-9 (Version None)
Quarter: 2009Q1

REPORT INFORMATION
  Report Type: 
  Country: None (occurrence: None)
  Receive Date: 20090203
  Receipt Date: 20090120
  Transmission Date: 20090719
  Serious: No
  Sender: FDA-Public Use
  Company Number: US-SOLVAY-00209000390

PATIENT
  Age: 16599 Day
  Sex: Female
  Weight: 60 kg

DRUGS (4)
  1. REGLAN [Concomitant]
     Indication: DRUG USE FOR UNKNOWN INDICATION
     Dosage: DAILY DOSE:  UNKNOWN, AS USED: UNKNOWN, FREQUENCY: UNKNOWN
     Route: 048
  2. ANDROGEL [Suspect]
     Indication: ACCIDENTAL EXPOSURE
     Dosage: DAILY DOSE: 5 GRAM(S)
     Route: 062
     Dates: start: 20090112
  3. SUBLINGUAL NITROGLYCERIN TABLETS [Concomitant]
     Indication: CHEST PAIN
     Dosage: DAILY DOSE:  UNKNOWN, AS USED: UNKNOWN, FREQUENCY: UNKNOWN
     Route: 060
  4. UNKNOWN PAIN MEDICATION [Concomitant]
     Indication: PAIN
     Dosage: DAILY DOSE:  UNKNOWN
     Route: 048

REACTIONS (4)
  - ABDOMINAL PAIN [None]
  - CHEST PAIN [None]
  - DIZZINESS [None]
  - RESPIRATORY DISORDER [None]
